FAERS Safety Report 10487980 (Version 1)
Quarter: 2014Q4

REPORT INFORMATION
  Report Type: Spontaneous
  Country: US (occurrence: US)
  Receive Date: 20141001
  Receipt Date: 20141001
  Transmission Date: 20150528
  Serious: Yes (Other)
  Sender: FDA-Public Use
  Company Number: US-FRI-1000071037

PATIENT
  Age: 89 Year
  Sex: Female
  Weight: 74.84 kg

DRUGS (1)
  1. NAMENDA XR [Suspect]
     Active Substance: MEMANTINE HYDROCHLORIDE
     Indication: DEMENTIA ALZHEIMER^S TYPE
     Dosage: 28 MG
     Route: 048
     Dates: start: 201403, end: 201408

REACTIONS (15)
  - Dizziness [Not Recovered/Not Resolved]
  - Blood urea increased [Not Recovered/Not Resolved]
  - Blood creatinine increased [Not Recovered/Not Resolved]
  - Urinary tract infection [Not Recovered/Not Resolved]
  - Urinary incontinence [Not Recovered/Not Resolved]
  - Confusional state [Recovering/Resolving]
  - Blister [Recovered/Resolved]
  - Disturbance in attention [Recovering/Resolving]
  - Abasia [Recovering/Resolving]
  - Dehydration [Not Recovered/Not Resolved]
  - Headache [Not Recovered/Not Resolved]
  - Faecal incontinence [Not Recovered/Not Resolved]
  - Oedema peripheral [Recovered/Resolved]
  - Amnesia [Recovering/Resolving]
  - Blood sodium increased [Not Recovered/Not Resolved]

NARRATIVE: CASE EVENT DATE: 2014
